FAERS Safety Report 7381956-4 (Version None)
Quarter: 2011Q1

REPORT INFORMATION
  Report Type: 
  Country: None (occurrence: None)
  Receive Date: 20110324
  Receipt Date: 20110324
  Transmission Date: 20110831
  Serious: Yes (Other)
  Sender: FDA-Public Use
  Company Number: None

PATIENT
  Age: 75 Year
  Sex: Male
  Weight: 75 kg

DRUGS (2)
  1. VECURONIUM BROMIDE [Suspect]
  2. VECURONIUM BROMIDE [Suspect]
     Indication: HEART VALVE REPLACEMENT
     Dosage: 36MG ONCE IV BOLUS
     Route: 040
     Dates: start: 20110101, end: 20110320

REACTIONS (1)
  - INCORRECT DOSE ADMINISTERED [None]
